FAERS Safety Report 13976159 (Version 2)
Quarter: 2017Q3

REPORT INFORMATION
  Report Type: Spontaneous
  Country: DE (occurrence: DE)
  Receive Date: 20170915
  Receipt Date: 20170920
  Transmission Date: 20171128
  Serious: Yes (Death, Hospitalization, Other)
  Sender: FDA-Public Use
  Company Number: DE-AMGEN-DEUSP2017138155

PATIENT
  Age: 73 Year
  Sex: Male

DRUGS (11)
  1. VINCRISTINE [Suspect]
     Active Substance: VINCRISTINE
     Indication: B-CELL LYMPHOMA
     Dosage: 1 MG, DAY 1 FOR 1 DAY
     Route: 042
     Dates: start: 20150326, end: 20150326
  2. PREDNISOLONE. [Suspect]
     Active Substance: PREDNISOLONE
     Indication: B-CELL LYMPHOMA
     Dosage: 587.5 MG, DAY1 TO 7 FOR 8 DAYS
     Route: 065
     Dates: start: 20150326, end: 20150402
  3. TORASEMID [Concomitant]
     Active Substance: TORSEMIDE
     Indication: HYPERTENSION
     Dosage: 10 MG, BID
     Route: 048
     Dates: start: 20150823
  4. RITUXIMAB. [Suspect]
     Active Substance: RITUXIMAB
     Indication: B-CELL LYMPHOMA
     Dosage: 375 MG/M2, CYCLICAL (DAY 1/DAY 15 FOR 80 DAYS)
     Route: 042
     Dates: start: 20141223
  5. PEGFILGRASTIM [Suspect]
     Active Substance: PEGFILGRASTIM
     Indication: B-CELL LYMPHOMA
     Dosage: 6 MG, DAY 4 FOR 1 DAY
     Route: 058
     Dates: start: 20150329, end: 20150329
  6. RITUXIMAB. [Suspect]
     Active Substance: RITUXIMAB
     Dosage: UNK
     Route: 042
     Dates: start: 20150312
  7. RITUXIMAB. [Suspect]
     Active Substance: RITUXIMAB
     Dosage: 670 MG, QD
     Route: 042
     Dates: start: 20150603
  8. RITUXIMAB. [Suspect]
     Active Substance: RITUXIMAB
     Dosage: 670 MG, QD
     Route: 042
     Dates: start: 20150730
  9. DOXORUBICIN [Suspect]
     Active Substance: DOXORUBICIN
     Indication: B-CELL LYMPHOMA
     Dosage: 90 MG, DAY 1 FOR 1 DAY
     Route: 042
     Dates: start: 20150326, end: 20150326
  10. CYCLOPHOSPHAMIDE. [Suspect]
     Active Substance: CYCLOPHOSPHAMIDE
     Indication: B-CELL LYMPHOMA
     Dosage: 1340 MG, DAY 1 FOR 1 DAY
     Route: 042
     Dates: start: 20150326, end: 20150326
  11. LEVOTHYROXINE SODIUM. [Concomitant]
     Active Substance: LEVOTHYROXINE SODIUM
     Indication: HYPOTHYROIDISM
     Dosage: 100 MUG, UNK
     Route: 048
     Dates: start: 20150823

REACTIONS (7)
  - Disease progression [Fatal]
  - General physical health deterioration [Unknown]
  - Pyrexia [Unknown]
  - Pyrexia [Unknown]
  - Sepsis [Recovered/Resolved]
  - Febrile neutropenia [Recovered/Resolved]
  - Chest pain [Recovered/Resolved]

NARRATIVE: CASE EVENT DATE: 20150401
